FAERS Safety Report 8481572-7 (Version None)
Quarter: 2012Q3

REPORT INFORMATION
  Report Type: 
  Country: None (occurrence: None)
  Receive Date: 20120702
  Receipt Date: 20120619
  Transmission Date: 20120928
  Serious: Yes (Hospitalization)
  Sender: FDA-Public Use
  Company Number: JP-VERTEX PHARMACEUTICALS INC.-AE-2012-009035

PATIENT
  Age: 50 Year
  Sex: Female

DRUGS (10)
  1. VX-950 [Suspect]
     Indication: HEPATITIS C
     Route: 048
     Dates: start: 20120528
  2. MUCOSTA [Concomitant]
     Dates: start: 20120528
  3. RIBAVIRIN [Concomitant]
     Indication: HEPATITIS C
     Route: 048
     Dates: start: 20120528, end: 20120610
  4. SELBEX [Concomitant]
     Route: 048
  5. MEILAX [Concomitant]
     Indication: INSOMNIA
     Dates: start: 20120601
  6. LOXONIN [Concomitant]
  7. RIBAVIRIN [Concomitant]
     Route: 048
     Dates: start: 20120611
  8. PEGASYS [Concomitant]
     Indication: HEPATITIS C
     Route: 051
     Dates: start: 20120528
  9. ALLOID [Concomitant]
     Dates: start: 20120602
  10. OMEPRAZOLE [Concomitant]
     Route: 048

REACTIONS (1)
  - DECREASED APPETITE [None]
